FAERS Safety Report 14971563 (Version 1)
Quarter: 2018Q2

REPORT INFORMATION
  Report Type: Spontaneous
  Country: US (occurrence: US)
  Receive Date: 20180604
  Receipt Date: 20180604
  Transmission Date: 20180711
  Serious: No
  Sender: FDA-Public Use
  Company Number: US-VIIV HEALTHCARE LIMITED-US2018096933

PATIENT
  Sex: Male

DRUGS (1)
  1. SELZENTRY [Suspect]
     Active Substance: MARAVIROC
     Dosage: 300 MG, U

REACTIONS (2)
  - Product supply issue [Unknown]
  - Drug dose omission [Unknown]

NARRATIVE: CASE EVENT DATE: 201803
